FAERS Safety Report 19369870 (Version 2)
Quarter: 2021Q2

REPORT INFORMATION
  Report Type: Spontaneous
  Country: PT (occurrence: PT)
  Receive Date: 20210604
  Receipt Date: 20210613
  Transmission Date: 20210717
  Serious: Yes (Other)
  Sender: FDA-Public Use
  Company Number: PT-AUROBINDO-AUR-APL-2021-022522

PATIENT
  Age: 32 Year
  Sex: Female

DRUGS (9)
  1. PALIPERIDONE PALMITATE [Concomitant]
     Active Substance: PALIPERIDONE PALMITATE
     Dosage: 75 MILLIGRAM
     Route: 030
     Dates: start: 201811
  2. ARIPIPRAZOLE TABLETS [Suspect]
     Active Substance: ARIPIPRAZOLE
     Indication: SCHIZOPHRENIA
     Dosage: 30 MILLIGRAM, ONCE A DAY
     Route: 065
     Dates: start: 2016
  3. ARIPIPRAZOLE TABLETS [Suspect]
     Active Substance: ARIPIPRAZOLE
     Dosage: 10 MG ID HALF TABLET
     Route: 065
  4. TREVICTA [Suspect]
     Active Substance: PALIPERIDONE PALMITATE
     Indication: SCHIZOPHRENIA
     Dosage: 175 MILLIGRAM,3 MONTH
     Route: 030
  5. TREVICTA [Suspect]
     Active Substance: PALIPERIDONE PALMITATE
     Dosage: 263 MILLIGRAM 3 MONTH
     Route: 030
     Dates: start: 201811
  6. PALIPERIDONE PALMITATE [Concomitant]
     Active Substance: PALIPERIDONE PALMITATE
     Indication: SCHIZOPHRENIA
     Dosage: 150 MILLIGRAM,1 MONTH
     Route: 030
  7. QUETIAPINE. [Suspect]
     Active Substance: QUETIAPINE
     Dosage: 150 MILLIGRAM
     Route: 065
  8. QUETIAPINE. [Suspect]
     Active Substance: QUETIAPINE
     Indication: SCHIZOPHRENIA
     Dosage: 50 MILLIGRAM
     Route: 065
  9. INVEGA [Suspect]
     Active Substance: PALIPERIDONE
     Indication: SCHIZOPHRENIA
     Dosage: 12 MILLIGRAM, ONCE A DAY
     Route: 048
     Dates: start: 2016

REACTIONS (4)
  - Social avoidant behaviour [Unknown]
  - Delusion [Unknown]
  - Amenorrhoea [Unknown]
  - Hyperprolactinaemia [Unknown]
